FAERS Safety Report 7523960-9 (Version None)
Quarter: 2011Q2

REPORT INFORMATION
  Report Type: 
  Country: None (occurrence: None)
  Receive Date: 20110603
  Receipt Date: 20110526
  Transmission Date: 20111010
  Serious: Yes (Life-Threatening, Hospitalization)
  Sender: FDA-Public Use
  Company Number: US-CELGENEUS-087-21660-11053859

PATIENT
  Sex: Female
  Weight: 37 kg

DRUGS (12)
  1. DECADRON [Concomitant]
     Route: 065
     Dates: start: 20101217, end: 20101217
  2. POLYGAM S/D [Concomitant]
     Route: 065
     Dates: start: 20101224
  3. GRAN [Concomitant]
     Dosage: 75 MICROGRAM
     Route: 065
     Dates: start: 20101225, end: 20101229
  4. CATECHOLAMINE [Concomitant]
     Route: 065
     Dates: start: 20101225
  5. GEMZAR [Concomitant]
     Route: 065
     Dates: start: 20110118
  6. ABRAXANE [Suspect]
     Dosage: 272 MILLIGRAM
     Route: 051
     Dates: start: 20101217, end: 20101217
  7. EMEND [Concomitant]
     Route: 065
     Dates: start: 20101217, end: 20101219
  8. POLARAMINE [Concomitant]
     Route: 065
     Dates: start: 20101217, end: 20101217
  9. ALBUMIN (HUMAN) [Concomitant]
     Dosage: 25 PERCENT
     Route: 065
     Dates: start: 20101225
  10. RED BLOOD CELLS [Concomitant]
     Route: 051
     Dates: start: 20101224, end: 20101224
  11. CEFEPIME [Concomitant]
     Dosage: 2 GRAM
     Route: 065
     Dates: start: 20101224, end: 20110117
  12. LACTEC [Concomitant]
     Route: 065
     Dates: start: 20101225

REACTIONS (9)
  - BLOOD CREATININE INCREASED [None]
  - BLOOD ALBUMIN DECREASED [None]
  - FEBRILE NEUTROPENIA [None]
  - HAEMOGLOBIN DECREASED [None]
  - C-REACTIVE PROTEIN INCREASED [None]
  - WHITE BLOOD CELL COUNT DECREASED [None]
  - SEPTIC SHOCK [None]
  - BLOOD UREA INCREASED [None]
  - BLOOD PRESSURE DECREASED [None]
